FAERS Safety Report 6812899-X (Version None)
Quarter: 2010Q3

REPORT INFORMATION
  Report Type: 
  Country: None (occurrence: None)
  Receive Date: 20100701
  Receipt Date: 20100624
  Transmission Date: 20110219
  Serious: Yes (Hospitalization)
  Sender: FDA-Public Use
  Company Number: US-CEPHALON-2010003455

PATIENT
  Sex: Male
  Weight: 88 kg

DRUGS (45)
  1. PROVIGIL [Suspect]
     Indication: FATIGUE
     Route: 048
     Dates: start: 20060101
  2. PROVIGIL [Suspect]
     Route: 048
     Dates: start: 20070101, end: 20070101
  3. AMRIX [Suspect]
     Indication: FACIAL PAIN
     Route: 048
     Dates: start: 20080101
  4. AMRIX [Suspect]
     Indication: BRUXISM
     Route: 048
     Dates: start: 20080101, end: 20080101
  5. ZANAFLEX [Concomitant]
     Indication: MUSCLE SPASMS
     Dates: start: 20090701
  6. LYRICA [Concomitant]
     Dates: start: 20081210
  7. WELLBUTRIN [Concomitant]
     Dates: start: 20081029
  8. ALLEGRA D 24 HOUR [Concomitant]
     Dates: start: 20000101
  9. AMBIEN CR [Concomitant]
     Dates: start: 20080101
  10. AMBIEN [Concomitant]
     Dates: start: 20000101, end: 20080101
  11. AMITIZA [Concomitant]
     Dates: start: 20080809
  12. MULTIVITAMINS + SUPPLEMENTS [Concomitant]
     Dates: start: 20080101
  13. BUTALBITAL/APAP [Concomitant]
     Dates: start: 19850101
  14. CIALIS [Concomitant]
     Dates: start: 20090323
  15. CYCLOBENZAPRINE [Concomitant]
     Dates: start: 20080709
  16. DIAZEPAM [Concomitant]
     Dates: start: 19990101
  17. FLECTOR PAD [Concomitant]
     Dates: start: 20090501
  18. FLUOXETINE [Concomitant]
     Dates: start: 19880101
  19. ATARAX [Concomitant]
     Dates: start: 20080809
  20. KETOCONAZOLE [Concomitant]
     Dates: start: 20040101
  21. LEVITRA [Concomitant]
     Dates: start: 20090101
  22. LEVOTHYROXINE SODIUM [Concomitant]
     Dates: start: 20030701
  23. LIDOCAINE HCL VISCOUS [Concomitant]
     Dates: start: 20020101
  24. LIDODERM [Concomitant]
     Dates: start: 20080701
  25. LORAZEPAM [Concomitant]
     Dates: start: 20080801
  26. LOVAZA [Concomitant]
     Dates: start: 20081223
  27. LUNESTA [Concomitant]
     Dates: start: 20070801
  28. MEPROBAMATE [Concomitant]
     Dates: start: 20100101
  29. NASONEX [Concomitant]
     Dates: start: 20080501
  30. NEXIUM [Concomitant]
  31. OXCARBAZEPINE [Concomitant]
     Dates: start: 20081230, end: 20090130
  32. OXYCODONE HCL AND ACETAMINOPHEN [Concomitant]
     Dates: start: 20000101
  33. PROTONIX [Concomitant]
     Dates: start: 20060801
  34. POLYETHYLENE GLYCOL [Concomitant]
     Dates: start: 20060801
  35. PROPECIA [Concomitant]
     Dates: start: 20081001, end: 20100101
  36. PROPRANOLOL HYDROCHLORIDE [Concomitant]
     Dates: start: 20030301
  37. ROZEREM [Concomitant]
     Dates: start: 20070801
  38. SINGULAIR [Concomitant]
     Dates: start: 19990101
  39. TAMIFLU [Concomitant]
     Dates: start: 20090101
  40. TAZORAC [Concomitant]
     Dates: start: 20091101
  41. TRAMADOL HCL [Concomitant]
     Dates: start: 20080701
  42. VALTREX [Concomitant]
     Dates: start: 20070701
  43. VOLTAREN [Concomitant]
     Dates: start: 20080701
  44. VYTORIN [Concomitant]
     Dates: start: 20080701
  45. ZOVIRAX [Concomitant]
     Dates: start: 20090101

REACTIONS (2)
  - EPILEPSY [None]
  - MEMORY IMPAIRMENT [None]
